FAERS Safety Report 19985952 (Version 3)
Quarter: 2021Q4

REPORT INFORMATION
  Report Type: Report from Study
  Country: CA (occurrence: None)
  Receive Date: 20211022
  Receipt Date: 20211109
  Transmission Date: 20220303
  Serious: Yes (Death)
  Sender: FDA-Public Use
  Company Number: CA-ROCHE-2940957

PATIENT
  Age: 74 Year
  Sex: Female
  Weight: 61.3 kg

DRUGS (17)
  1. TIRAGOLUMAB [Suspect]
     Active Substance: TIRAGOLUMAB
     Indication: Neoplasm
     Dosage: DATE OF MOST RECENT DOSE OF STUDY DRUG PRIOR TO ADVERSE EVENT 03-SEP-2021 FROM 2:30 PM TO 3:00 PM 84
     Route: 042
     Dates: start: 20210806
  2. ATEZOLIZUMAB [Suspect]
     Active Substance: ATEZOLIZUMAB
     Indication: Neoplasm
     Dosage: DATE OF MOST RECENT DOSE OF STUDY DRUG PRIOR TO ADVERSE EVENT 03-SEP-2021 FROM 2:30 PM TO 3:00 PM 16
     Route: 042
     Dates: start: 20210806
  3. CALCIUM [Concomitant]
     Active Substance: CALCIUM
     Route: 048
     Dates: start: 202101
  4. FERROUS GLUCONATE [Concomitant]
     Active Substance: FERROUS GLUCONATE
     Route: 048
     Dates: start: 202103
  5. HUMALOG [Concomitant]
     Active Substance: INSULIN LISPRO
     Indication: Glucose tolerance impaired
     Route: 058
     Dates: start: 2011
  6. LOMOTIL (CANADA) [Concomitant]
     Indication: Diarrhoea
     Route: 048
     Dates: start: 202101
  7. LOPERAMIDE [Concomitant]
     Active Substance: LOPERAMIDE
     Indication: Diarrhoea
     Route: 048
     Dates: start: 202101
  8. PANTOPRAZOLE [Concomitant]
     Active Substance: PANTOPRAZOLE
     Indication: Gastrooesophageal reflux disease
     Route: 048
     Dates: start: 202102
  9. POTASSIUM CHLORIDE [Concomitant]
     Active Substance: POTASSIUM CHLORIDE
     Dosage: 16 OTHER
     Route: 048
     Dates: start: 202103
  10. LANTUS [Concomitant]
     Active Substance: INSULIN GLARGINE
     Indication: Glucose tolerance impaired
     Dosage: 10 U
     Route: 058
     Dates: start: 20210806
  11. BETAMETHASONE [Concomitant]
     Active Substance: BETAMETHASONE
     Indication: Rash
     Route: 061
     Dates: start: 20210813
  12. ACITRETIN [Concomitant]
     Active Substance: ACITRETIN
     Indication: Psoriasis
     Route: 048
     Dates: start: 20210920
  13. DUOBRII [Concomitant]
     Active Substance: HALOBETASOL PROPIONATE\TAZAROTENE
     Indication: Psoriasis
     Route: 061
     Dates: start: 20210920
  14. ENSTILAR [Concomitant]
     Active Substance: BETAMETHASONE DIPROPIONATE\CALCIPOTRIENE HYDRATE
     Indication: Psoriasis
     Dates: start: 20210902, end: 20210919
  15. MAGNESIUM OXIDE [Concomitant]
     Active Substance: MAGNESIUM OXIDE
     Indication: Hypomagnesaemia
     Route: 048
     Dates: start: 20210910
  16. NYSTATIN [Concomitant]
     Active Substance: NYSTATIN
     Indication: Mucosal inflammation
     Route: 048
     Dates: start: 20211014
  17. TYLENOL ARTHRITIS PAIN [Concomitant]
     Active Substance: ACETAMINOPHEN
     Indication: Arthralgia
     Route: 048
     Dates: start: 20210930

REACTIONS (1)
  - Cardiac disorder [Fatal]

NARRATIVE: CASE EVENT DATE: 20211016
